FAERS Safety Report 10205910 (Version 2)
Quarter: 2014Q3

REPORT INFORMATION
  Report Type: Spontaneous
  Country: NL (occurrence: NL)
  Receive Date: 20140530
  Receipt Date: 20140812
  Transmission Date: 20150326
  Serious: Yes (Life-Threatening, Hospitalization)
  Sender: FDA-Public Use
  Company Number: NL-009507513-1405NLD013889

PATIENT
  Age: 63 Year
  Sex: Female
  Weight: 80 kg

DRUGS (7)
  1. BETMIGA [Interacting]
     Active Substance: MIRABEGRON
     Indication: URINARY INCONTINENCE
     Dosage: 50 MG, QD (ONCE DAILY 1 PIECE)
     Route: 048
     Dates: start: 20140507, end: 20140513
  2. CRESTOR [Interacting]
     Active Substance: ROSUVASTATIN CALCIUM
     Indication: DIABETES MELLITUS
     Dosage: 10 MG, BID (2 TIMES DAILY 1 PIECE)
     Route: 048
     Dates: start: 2012
  3. HYDROCHLOROTHIAZIDE (+) VALSARTAN [Interacting]
     Active Substance: HYDROCHLOROTHIAZIDE\VALSARTAN
     Indication: HYPERTENSION
     Dosage: 1 DF, QD (ONCE DAILY 1 PIECE)
     Route: 048
     Dates: start: 2012, end: 20140512
  4. BISOPROLOL [Suspect]
     Active Substance: BISOPROLOL
     Indication: HYPERTENSION
     Dosage: 2.5 MG, QD (ONCE DAILY 1 PIECE)
     Route: 048
     Dates: start: 2012
  5. BISOPROLOL [Interacting]
     Active Substance: BISOPROLOL
     Indication: HYPERTENSION
     Dosage: 2.5 MG, QD (ONCE DAILY 1 PIECE)
     Route: 048
     Dates: start: 2012, end: 20140512
  6. JANUMET [Suspect]
     Active Substance: METFORMIN HYDROCHLORIDE\SITAGLIPTIN PHOSPHATE
     Indication: DIABETES MELLITUS
     Dosage: UNK DF, UNK (ADDITIONAL INFO: UNKNOWN)
     Route: 048
     Dates: start: 2012, end: 20140512
  7. BARNIDIPINE [Interacting]
     Active Substance: BARNIDIPINE
     Indication: HYPERTENSION
     Dosage: 10 MG, QD (ONCE DAILY 1 PIECE)
     Route: 048
     Dates: start: 2012, end: 20140512

REACTIONS (5)
  - Lactic acidosis [Recovered/Resolved]
  - Blood creatine phosphokinase increased [Recovered/Resolved]
  - Drug interaction [Recovered/Resolved]
  - Renal failure [Recovering/Resolving]
  - Urosepsis [Recovered/Resolved]

NARRATIVE: CASE EVENT DATE: 20140512
